FAERS Safety Report 9951330 (Version 1)
Quarter: 2014Q1

REPORT INFORMATION
  Report Type: Spontaneous
  Country: US (occurrence: US)
  Receive Date: 20140304
  Receipt Date: 20140304
  Transmission Date: 20141002
  Serious: No
  Sender: FDA-Public Use
  Company Number: US-009507513-1402USA013034

PATIENT
  Age: 16 Year
  Sex: Female
  Weight: 52.15 kg

DRUGS (1)
  1. NEXPLANON [Suspect]
     Indication: CONTRACEPTION
     Dosage: 1 ROD, EVERY 3 YEARS
     Route: 058
     Dates: start: 20130211

REACTIONS (4)
  - Abdominal pain upper [Unknown]
  - Menstruation irregular [Unknown]
  - Implant site bruising [Unknown]
  - Implant site pain [Unknown]
